FAERS Safety Report 6122569-1 (Version None)
Quarter: 2009Q1

REPORT INFORMATION
  Report Type: 
  Country: None (occurrence: None)
  Receive Date: 20090318
  Receipt Date: 20090316
  Transmission Date: 20090719
  Serious: Yes (Hospitalization)
  Sender: FDA-Public Use
  Company Number: US-BRISTOL-MYERS SQUIBB COMPANY-14545180

PATIENT
  Sex: Female

DRUGS (2)
  1. COUMADIN [Suspect]
  2. LOVENOX [Suspect]

REACTIONS (3)
  - DEEP VEIN THROMBOSIS [None]
  - INJECTION SITE HAEMATOMA [None]
  - PULMONARY EMBOLISM [None]
